FAERS Safety Report 4734767-X (Version None)
Quarter: 2005Q3

REPORT INFORMATION
  Report Type: 
  Country: None (occurrence: None)
  Receive Date: 20050721
  Receipt Date: 20050422
  Transmission Date: 20060218
  Serious: No
  Sender: FDA-Public Use
  Company Number: 2005SP000312

PATIENT
  Sex: Female

DRUGS (5)
  1. LUNESTA [Suspect]
     Indication: INSOMNIA
     Dosage: 3 MG;HS;ORAL; 2 MG; X1; ORAL
     Route: 048
     Dates: start: 20050421
  2. LUNESTA [Suspect]
     Indication: INSOMNIA
     Dosage: 3 MG;HS;ORAL; 2 MG; X1; ORAL
     Route: 048
     Dates: start: 20050422
  3. RESTORIL [Concomitant]
  4. AMBIEN [Concomitant]
  5. PROMETRIUM [Concomitant]

REACTIONS (2)
  - DRUG INEFFECTIVE [None]
  - INSOMNIA [None]
